FAERS Safety Report 9113890 (Version 1)
Quarter: 2013Q1

REPORT INFORMATION
  Report Type: Spontaneous
  Country: US (occurrence: US)
  Receive Date: 20130208
  Receipt Date: 20130208
  Transmission Date: 20140127
  Serious: Yes (Death)
  Sender: FDA-Public Use
  Company Number: CHPA2013US002337

PATIENT
  Age: 32 Year
  Sex: Male

DRUGS (7)
  1. DEXTROMETHORPHAN HYDROBROMIDE [Suspect]
     Dosage: UNK, UNK
     Route: 048
  2. OXYCODONE [Suspect]
     Dosage: UNK, UNK
     Route: 048
  3. MORPHINE [Suspect]
     Dosage: UNK, UNK
     Route: 048
  4. DIAZEPAM [Suspect]
     Dosage: UNK, UNK
     Route: 048
  5. BUPROPION [Suspect]
     Dosage: UNK, UNK
     Route: 048
  6. PAROXETINE [Suspect]
     Dosage: UNK, UNK
     Route: 048
  7. TRAZODONE [Suspect]
     Dosage: UNK, UNK
     Route: 048

REACTIONS (1)
  - Drug abuse [Fatal]
